FAERS Safety Report 19719148 (Version 1)
Quarter: 2021Q3

REPORT INFORMATION
  Report Type: Spontaneous
  Country: GB (occurrence: GB)
  Receive Date: 20210818
  Receipt Date: 20210818
  Transmission Date: 20211014
  Serious: Yes (Other)
  Sender: FDA-Public Use
  Company Number: GB-ANIPHARMA-2021-UK-000237

PATIENT
  Age: 51 Year
  Sex: Female
  Weight: 68 kg

DRUGS (4)
  1. CANDESARTAN. [Suspect]
     Active Substance: CANDESARTAN
     Indication: PRODUCT USED FOR UNKNOWN INDICATION
     Dosage: 2 DF QD
     Route: 048
     Dates: start: 20210804
  2. RAMIPRIL. [Concomitant]
     Active Substance: RAMIPRIL
     Dosage: TAKE ONE DAILY
     Route: 065
     Dates: start: 20200918, end: 20210810
  3. LERCANIDIPINE HYDROCHLORIDE [Concomitant]
     Active Substance: LERCANIDIPINE HYDROCHLORIDE
     Dosage: TAKE ONE DAILY
     Route: 065
     Dates: start: 20210810
  4. NITROFURANTOIN. [Concomitant]
     Active Substance: NITROFURANTOIN
     Dosage: TAKE ONE TWICE DAILY
     Route: 065
     Dates: start: 20210604, end: 20210611

REACTIONS (2)
  - Back pain [Unknown]
  - Arthralgia [Recovered/Resolved]

NARRATIVE: CASE EVENT DATE: 20210812
